FAERS Safety Report 12740533 (Version 4)
Quarter: 2016Q4

REPORT INFORMATION
  Report Type: Spontaneous
  Country: US (occurrence: US)
  Receive Date: 20160913
  Receipt Date: 20161103
  Transmission Date: 20170207
  Serious: Yes (Other)
  Sender: FDA-Public Use
  Company Number: US-JNJFOC-20160903594

PATIENT
  Age: 72 Year
  Sex: Female
  Weight: 52.16 kg

DRUGS (1)
  1. LISTERINE TOTAL CARE STAIN REMOVER ANTI CAVITY FRESHMINT [Suspect]
     Active Substance: SODIUM FLUORIDE
     Indication: DENTAL DISORDER PROPHYLAXIS
     Dosage: 1/3 CAP FOR 6 DAYS, TWICE A DAY, USED AS RINSE, ABOUT TWICE DAILY FOR 2 WEEKS
     Route: 048
     Dates: start: 201608, end: 201608

REACTIONS (1)
  - Burn oral cavity [Recovered/Resolved]

NARRATIVE: CASE EVENT DATE: 201608
